FAERS Safety Report 8851164 (Version 7)
Quarter: 2013Q2

REPORT INFORMATION
  Report Type: Spontaneous
  Country: US (occurrence: US)
  Receive Date: 20121019
  Receipt Date: 20130606
  Transmission Date: 20140414
  Serious: No
  Sender: FDA-Public Use
  Company Number: US-009507513-1210USA002259

PATIENT
  Sex: Male
  Weight: 91.16 kg

DRUGS (4)
  1. PEGINTRON [Suspect]
     Indication: HEPATITIS C
     Dosage: 120 MICROGRAM, QW
     Route: 058
     Dates: start: 20120928, end: 20130414
  2. REBETOL [Suspect]
     Indication: HEPATITIS C
     Dosage: 1200 MG, QD
     Route: 048
     Dates: start: 20120928
  3. REBETOL [Suspect]
     Dosage: 600 MG, QD
     Dates: end: 20130414
  4. VICTRELIS [Suspect]
     Indication: HEPATITIS C
     Dosage: 800 MG, TID
     Route: 048
     Dates: start: 20121029, end: 20130414

REACTIONS (15)
  - Oedema [Recovered/Resolved]
  - Back pain [Unknown]
  - Insomnia [Unknown]
  - Myalgia [Unknown]
  - Headache [Unknown]
  - Abdominal pain upper [Unknown]
  - Back pain [Unknown]
  - Abdominal distension [Unknown]
  - Local swelling [Not Recovered/Not Resolved]
  - Red blood cell count decreased [Unknown]
  - Oedema peripheral [Not Recovered/Not Resolved]
  - Myalgia [Not Recovered/Not Resolved]
  - Headache [Recovered/Resolved]
  - Back pain [Recovered/Resolved]
  - Anaemia [Recovered/Resolved]
